FAERS Safety Report 5791768-0 (Version None)
Quarter: 2008Q2

REPORT INFORMATION
  Report Type: 
  Country: None (occurrence: None)
  Receive Date: 20080626
  Receipt Date: 20080310
  Transmission Date: 20081010
  Serious: No
  Sender: FDA-Public Use
  Company Number: A0714298A

PATIENT

DRUGS (1)
  1. ALLI [Suspect]

REACTIONS (4)
  - CHILLS [None]
  - DIARRHOEA [None]
  - GASTROINTESTINAL DISORDER [None]
  - HYPERHIDROSIS [None]
